FAERS Safety Report 12366641 (Version 1)
Quarter: 2016Q2

REPORT INFORMATION
  Report Type: Spontaneous
  Country: US (occurrence: US)
  Receive Date: 20160513
  Receipt Date: 20160513
  Transmission Date: 20160815
  Serious: Yes (Hospitalization, Other)
  Sender: FDA-Public Use
  Company Number: US-PFIZER INC-9937576

PATIENT
  Age: 37 Year
  Sex: Male

DRUGS (3)
  1. ATENOLOL. [Suspect]
     Active Substance: ATENOLOL
     Indication: COMPLETED SUICIDE
     Dosage: DAILY
     Route: 048
  2. ALPRAZOLAM. [Suspect]
     Active Substance: ALPRAZOLAM
     Indication: COMPLETED SUICIDE
     Dosage: DAILY
     Route: 048
  3. AMLODIPINE [Suspect]
     Active Substance: AMLODIPINE BESYLATE
     Indication: COMPLETED SUICIDE
     Dosage: DAILY
     Route: 048

REACTIONS (6)
  - Hypoglycaemia [Recovering/Resolving]
  - Atrioventricular block complete [Recovering/Resolving]
  - Toxicity to various agents [Recovering/Resolving]
  - Intentional overdose [Recovering/Resolving]
  - Pneumonitis [Recovering/Resolving]
  - Hyperglycaemia [Recovering/Resolving]
